FAERS Safety Report 4738490-7 (Version None)
Quarter: 2005Q3

REPORT INFORMATION
  Report Type: 
  Country: None (occurrence: None)
  Receive Date: 20050809
  Receipt Date: 20050718
  Transmission Date: 20060218
  Serious: Yes (Hospitalization)
  Sender: FDA-Public Use
  Company Number: US-BRISTOL-MYERS SQUIBB COMPANY-13041348

PATIENT
  Age: 33 Year
  Sex: Female
  Weight: 91 kg

DRUGS (8)
  1. ABILIFY [Suspect]
     Indication: SCHIZOPHRENIA
     Dosage: DOSAGE: 30MG, THEN REDUCED TO 20MG, THEN INCREASED TO 30MG
     Route: 048
     Dates: start: 20040608
  2. CLOZARIL [Concomitant]
  3. PROLIXIN DECANOATE [Concomitant]
     Route: 030
  4. NALTREXONE [Concomitant]
     Dates: start: 20031201
  5. ATIVAN [Concomitant]
  6. HYDROXYZINE [Concomitant]
  7. LAMICTAL [Concomitant]
     Dates: start: 20050104
  8. LEXAPRO [Concomitant]
     Dates: start: 20050501

REACTIONS (7)
  - COMA [None]
  - CONFUSIONAL STATE [None]
  - COUGH [None]
  - PSYCHOTIC DISORDER [None]
  - SCHIZOPHRENIA [None]
  - TARDIVE DYSKINESIA [None]
  - TREMOR [None]
